FAERS Safety Report 14329964 (Version 1)
Quarter: 2017Q4

REPORT INFORMATION
  Report Type: Spontaneous
  Country: US (occurrence: US)
  Receive Date: 20171227
  Receipt Date: 20171227
  Transmission Date: 20180321
  Serious: No
  Sender: FDA-Public Use
  Company Number: US-009507513-1712USA000703

PATIENT
  Age: 23 Year
  Sex: Female
  Weight: 116 kg

DRUGS (1)
  1. NEXPLANON [Suspect]
     Active Substance: ETONOGESTREL
     Dosage: 1 DF, UNK
     Route: 059
     Dates: start: 20170504, end: 20171122

REACTIONS (4)
  - Limb discomfort [Recovered/Resolved]
  - Implant site pain [Recovered/Resolved]
  - Implant site reaction [Recovered/Resolved]
  - Device breakage [Recovered/Resolved]

NARRATIVE: CASE EVENT DATE: 201705
